FAERS Safety Report 11175217 (Version 1)
Quarter: 2015Q2

REPORT INFORMATION
  Report Type: Spontaneous
  Country: CA (occurrence: CA)
  Receive Date: 20150609
  Receipt Date: 20150609
  Transmission Date: 20150821
  Serious: Yes (Other)
  Sender: FDA-Public Use
  Company Number: CA-JNJFOC-20150521062

PATIENT
  Age: 24 Year
  Sex: Female
  Weight: 51.26 kg

DRUGS (2)
  1. REACTINE ES TABLETS [Suspect]
     Active Substance: CETIRIZINE\CETIRIZINE HYDROCHLORIDE
     Indication: SEASONAL ALLERGY
     Dosage: 1 PILL
     Route: 048
     Dates: start: 20150528, end: 20150528
  2. REACTINE ES TABLETS [Suspect]
     Active Substance: CETIRIZINE\CETIRIZINE HYDROCHLORIDE
     Route: 048

REACTIONS (1)
  - Pharyngeal oedema [Not Recovered/Not Resolved]

NARRATIVE: CASE EVENT DATE: 20150528
